FAERS Safety Report 8269695-9 (Version None)
Quarter: 2012Q2

REPORT INFORMATION
  Report Type: 
  Country: None (occurrence: None)
  Receive Date: 20120405
  Receipt Date: 20120326
  Transmission Date: 20120825
  Serious: Yes (Death, Other)
  Sender: FDA-Public Use
  Company Number: USA/USA/12/0023722

PATIENT
  Age: 52 Year
  Sex: Male

DRUGS (1)
  1. TACROLIMUS [Suspect]
     Indication: PRODUCT USED FOR UNKNOWN INDICATION

REACTIONS (6)
  - LETHARGY [None]
  - AGITATION [None]
  - APHASIA [None]
  - MENTAL STATUS CHANGES [None]
  - CEREBRAL HAEMORRHAGE [None]
  - HYPERTENSION [None]
